FAERS Safety Report 15545990 (Version 1)
Quarter: 2018Q4

REPORT INFORMATION
  Report Type: Spontaneous
  Country: US (occurrence: US)
  Receive Date: 20181023
  Receipt Date: 20181023
  Transmission Date: 20190205
  Serious: Yes (Hospitalization)
  Sender: FDA-Public Use
  Company Number: None

PATIENT
  Age: 58 Year
  Sex: Male
  Weight: 131 kg

DRUGS (1)
  1. ALTEPLASE. [Suspect]
     Active Substance: ALTEPLASE
     Indication: CEREBRAL ARTERY OCCLUSION
     Dosage: ?          OTHER FREQUENCY:ONCE, BOLUS + GTT;?
     Route: 042
     Dates: start: 20181020, end: 20181020

REACTIONS (1)
  - Ischaemic cerebral infarction [None]

NARRATIVE: CASE EVENT DATE: 20181020
